FAERS Safety Report 12978270 (Version 1)
Quarter: 2016Q4

REPORT INFORMATION
  Report Type: Spontaneous
  Country: US (occurrence: US)
  Receive Date: 20161128
  Receipt Date: 20161128
  Transmission Date: 20170207
  Serious: Yes (Hospitalization, Other)
  Sender: FDA-Public Use
  Company Number: US-TAKEDA-2016TUS021308

PATIENT
  Sex: Female

DRUGS (10)
  1. ATORVASTATIN [Suspect]
     Active Substance: ATORVASTATIN
     Indication: PAIN IN EXTREMITY
     Dosage: UNK
     Route: 065
  2. CODEINE [Suspect]
     Active Substance: CODEINE
     Indication: NONSPECIFIC REACTION
     Dosage: UNK
     Route: 065
  3. PRAVASTATIN. [Suspect]
     Active Substance: PRAVASTATIN
     Indication: PAIN IN EXTREMITY
     Dosage: UNK
     Route: 065
  4. DOXYCYCLINE. [Suspect]
     Active Substance: DOXYCYCLINE
     Indication: DIARRHOEA
  5. FENOFIBRATE. [Suspect]
     Active Substance: FENOFIBRATE
     Indication: MUSCLE SPASMS
     Dosage: UNK
     Route: 065
  6. PRAVASTATIN. [Suspect]
     Active Substance: PRAVASTATIN
     Indication: MUSCLE SPASMS
  7. ZETIA [Suspect]
     Active Substance: EZETIMIBE
     Indication: MUSCLE SPASMS
  8. PIOGLITAZONE. [Suspect]
     Active Substance: PIOGLITAZONE
     Indication: PRODUCT USED FOR UNKNOWN INDICATION
     Dosage: UNK
     Route: 065
  9. DOXYCYCLINE. [Suspect]
     Active Substance: DOXYCYCLINE
     Indication: NAUSEA
     Dosage: UNK
     Route: 065
  10. ZETIA [Suspect]
     Active Substance: EZETIMIBE
     Indication: PAIN IN EXTREMITY
     Dosage: UNK
     Route: 065

REACTIONS (4)
  - Cardiac disorder [Recovering/Resolving]
  - Pain in extremity [Recovering/Resolving]
  - Blood pressure increased [Recovering/Resolving]
  - Angina pectoris [Recovering/Resolving]
